FAERS Safety Report 25875524 (Version 4)
Quarter: 2025Q4

REPORT INFORMATION
  Report Type: Spontaneous
  Country: EU (occurrence: EU)
  Receive Date: 20251003
  Receipt Date: 20251103
  Transmission Date: 20260117
  Serious: Yes (Hospitalization)
  Sender: ALEXION PHARMACEUTICALS
  Company Number: None

PATIENT
  Age: 70 Year
  Sex: Female
  Weight: 70 kg

DRUGS (17)
  1. ESOMEPRAZOLE [Suspect]
     Active Substance: ESOMEPRAZOLE
     Indication: Product used for unknown indication
     Dosage: 40 MILLIGRAM, QD
     Dates: start: 20190915, end: 20250910
  2. HYDROCHLOROTHIAZIDE\VALSARTAN [Interacting]
     Active Substance: HYDROCHLOROTHIAZIDE\VALSARTAN
     Indication: Hypertension
     Dosage: 1 DOSAGE FORM, 1/DAY
     Dates: start: 20190915, end: 20250910
  3. HYDROCHLOROTHIAZIDE\VALSARTAN [Interacting]
     Active Substance: HYDROCHLOROTHIAZIDE\VALSARTAN
     Indication: Hypertension
  4. ESCITALOPRAM OXALATE [Interacting]
     Active Substance: ESCITALOPRAM OXALATE
     Indication: Hypertension
     Dosage: 5 MILLIGRAM, 1/DAY
     Dates: start: 20190915, end: 20250910
  5. ESCITALOPRAM OXALATE [Interacting]
     Active Substance: ESCITALOPRAM OXALATE
     Indication: Hypertension
  6. ASPIRIN [Concomitant]
     Active Substance: ASPIRIN
     Indication: Cardiovascular event prophylaxis
     Dosage: 1 DOSAGE FORM, 1/DAY
     Dates: start: 20190915
  7. VERAPAMIL HYDROCHLORIDE [Concomitant]
     Active Substance: VERAPAMIL HYDROCHLORIDE
     Indication: Hypertension
     Dosage: 240 MILLIGRAM, 1/DAY
     Dates: start: 20190915
  8. VERAPAMIL HYDROCHLORIDE [Concomitant]
     Active Substance: VERAPAMIL HYDROCHLORIDE
     Indication: Hypertension
  9. NICORANDIL [Concomitant]
     Active Substance: NICORANDIL
     Indication: Hypertension
     Dosage: 10 MILLIGRAM, EVERY 12 HRS
     Dates: start: 20190915
  10. NICORANDIL [Concomitant]
     Active Substance: NICORANDIL
     Indication: Hypertension
  11. ATORVASTATIN [Concomitant]
     Active Substance: ATORVASTATIN
     Indication: Dyslipidaemia
     Dosage: 20 MILLIGRAM, QD
     Dates: start: 20190915
  12. CHOLECALCIFEROL [Concomitant]
     Active Substance: CHOLECALCIFEROL
     Indication: Vitamin supplementation
     Dosage: 1 DOSAGE FORM, 1/MONTH
     Dates: start: 20190915
  13. CHOLECALCIFEROL [Concomitant]
     Active Substance: CHOLECALCIFEROL
     Indication: Vitamin supplementation
  14. DOLIPRANE [Concomitant]
     Active Substance: ACETAMINOPHEN
     Indication: Osteoarthritis
     Dosage: 1 DOSAGE FORM, EVERY 12 HRS
     Dates: start: 20190915
  15. DOLIPRANE [Concomitant]
     Active Substance: ACETAMINOPHEN
     Indication: Osteoarthritis
  16. TOVIAZ [Concomitant]
     Active Substance: FESOTERODINE FUMARATE
     Indication: Product used for unknown indication
     Dosage: 1 DOSAGE FORM, 1/DAY
     Dates: start: 20190915
  17. LEVOCABASTINE HYDROCHLORIDE [Concomitant]
     Active Substance: LEVOCABASTINE HYDROCHLORIDE
     Indication: Conjunctivitis allergic
     Dosage: 1 DOSAGE FORM, Q6H
     Dates: start: 20190915

REACTIONS (4)
  - Hypomagnesaemia [Recovering/Resolving]
  - Hypokalaemia [Recovered/Resolved]
  - Electrocardiogram QT prolonged [Recovered/Resolved]
  - Drug interaction [Recovered/Resolved]

NARRATIVE: CASE EVENT DATE: 20190915
